FAERS Safety Report 9102436 (Version 1)
Quarter: 2013Q1

REPORT INFORMATION
  Report Type: Spontaneous
  Country: FR (occurrence: FR)
  Receive Date: 20130219
  Receipt Date: 20130219
  Transmission Date: 20140127
  Serious: Yes (Hospitalization)
  Sender: FDA-Public Use
  Company Number: FR-SANOFI-AVENTIS-2013SA013467

PATIENT
  Age: 65 Year
  Sex: Female

DRUGS (12)
  1. PLAVIX [Suspect]
     Indication: PRODUCT USED FOR UNKNOWN INDICATION
     Route: 048
  2. KARDEGIC [Suspect]
     Indication: PRODUCT USED FOR UNKNOWN INDICATION
     Route: 048
  3. PRADAXA [Suspect]
     Indication: PRODUCT USED FOR UNKNOWN INDICATION
     Route: 048
     Dates: start: 20121221, end: 20130102
  4. LEVOTHYROX [Concomitant]
  5. CORGARD [Concomitant]
  6. ATORVASTATIN [Concomitant]
  7. AMLOR [Concomitant]
  8. TRAMADOL HYDROCHLORIDE [Concomitant]
  9. DAFALGAN [Concomitant]
  10. PANTOPRAZOLE [Concomitant]
  11. ALENDRONIC ACID [Concomitant]
  12. TANGANIL [Concomitant]

REACTIONS (2)
  - Atrial thrombosis [Not Recovered/Not Resolved]
  - Drug ineffective [Unknown]
